FAERS Safety Report 8524738-X (Version None)
Quarter: 2012Q3

REPORT INFORMATION
  Report Type: 
  Country: None (occurrence: None)
  Receive Date: 20120720
  Receipt Date: 20120709
  Transmission Date: 20120928
  Serious: Yes (Hospitalization)
  Sender: FDA-Public Use
  Company Number: FR-009507513-1207FRA005388

PATIENT

DRUGS (3)
  1. AMARYL [Concomitant]
     Indication: TYPE 2 DIABETES MELLITUS
     Dosage: 4 MG, UNK
     Route: 048
     Dates: end: 20111209
  2. SITAGLIPTIN PHOSPHATE [Suspect]
     Indication: TYPE 2 DIABETES MELLITUS
     Dosage: 100 MG, QD
     Route: 048
     Dates: start: 20100720, end: 20111209
  3. METFORMIN HYDROCHLORIDE [Concomitant]
     Indication: TYPE 2 DIABETES MELLITUS
     Dosage: 1000 MG, BID
     Route: 048
     Dates: end: 20100922

REACTIONS (5)
  - ABDOMINAL PAIN [None]
  - DRUG INEFFECTIVE [None]
  - NEOPLASM MALIGNANT [None]
  - ASCITES [None]
  - HEPATOMEGALY [None]
